FAERS Safety Report 17812525 (Version 4)
Quarter: 2021Q2

REPORT INFORMATION
  Report Type: Report from Study
  Country: US (occurrence: US)
  Receive Date: 20200521
  Receipt Date: 20210430
  Transmission Date: 20210716
  Serious: Yes (Hospitalization, Other)
  Sender: FDA-Public Use
  Company Number: US-SHIRE-US202016733

PATIENT
  Age: 54 Year
  Sex: Male

DRUGS (8)
  1. TEDUGLUTIDE [Suspect]
     Active Substance: TEDUGLUTIDE
     Indication: MALABSORPTION
     Dosage: 0.37 MILLILITER, QD
     Route: 058
     Dates: start: 20200425
  2. TEDUGLUTIDE [Suspect]
     Active Substance: TEDUGLUTIDE
     Indication: SHORT-BOWEL SYNDROME
     Dosage: 0.37 MILLILITER, QD
     Route: 058
     Dates: start: 20200424
  3. TEDUGLUTIDE [Suspect]
     Active Substance: TEDUGLUTIDE
     Indication: SHORT-BOWEL SYNDROME
     Dosage: 0.37 MILLILITER, QD
     Route: 058
     Dates: start: 20200424
  4. TEDUGLUTIDE [Suspect]
     Active Substance: TEDUGLUTIDE
     Indication: SHORT-BOWEL SYNDROME
     Dosage: 0.37 MILLILITER, QD
     Route: 058
     Dates: start: 20200424
  5. TEDUGLUTIDE [Suspect]
     Active Substance: TEDUGLUTIDE
     Indication: MALABSORPTION
     Dosage: 0.37 MILLILITER, QD
     Route: 058
     Dates: start: 20200425
  6. TEDUGLUTIDE [Suspect]
     Active Substance: TEDUGLUTIDE
     Indication: MALABSORPTION
     Dosage: 0.37 MILLILITER, QD
     Route: 058
     Dates: start: 20200425
  7. TEDUGLUTIDE [Suspect]
     Active Substance: TEDUGLUTIDE
     Indication: MALABSORPTION
     Dosage: 0.37 MILLILITER, QD
     Route: 058
     Dates: start: 20200425
  8. TEDUGLUTIDE [Suspect]
     Active Substance: TEDUGLUTIDE
     Indication: SHORT-BOWEL SYNDROME
     Dosage: 0.37 MILLILITER, QD
     Route: 058
     Dates: start: 20200424

REACTIONS (4)
  - Intestinal anastomosis [Unknown]
  - Device related sepsis [Unknown]
  - Thrombosis [Unknown]
  - Device related infection [Unknown]

NARRATIVE: CASE EVENT DATE: 20200512
